FAERS Safety Report 8128464-0 (Version None)
Quarter: 2012Q1

REPORT INFORMATION
  Report Type: 
  Country: None (occurrence: None)
  Receive Date: 20120210
  Receipt Date: 20120131
  Transmission Date: 20120608
  Serious: Yes (Hospitalization, Other)
  Sender: FDA-Public Use
  Company Number: FR-JNJFOC-20120204805

PATIENT
  Age: 27 Year
  Sex: Female

DRUGS (30)
  1. DOXORUBICIN HCL [Suspect]
     Route: 042
  2. IFOSFAMIDE [Suspect]
     Dosage: CYCLE 1 AI50 REGIMEN, CONTINUOUS OVER 48 HOURS (DAYS 1 AND 2)
     Route: 042
  3. IFOSFAMIDE [Suspect]
     Route: 042
  4. DOXORUBICIN HCL [Suspect]
     Route: 042
  5. DOXORUBICIN HCL [Suspect]
     Dosage: CYCLE 1 OF AI50 REGIMEN, ON DAY 1
     Route: 042
  6. NEUPOGEN [Concomitant]
     Indication: PALLIATIVE CARE
     Route: 065
  7. NEUPOGEN [Concomitant]
     Route: 065
  8. NEUPOGEN [Concomitant]
     Route: 065
  9. ETOPOSIDE [Concomitant]
     Indication: SARCOMA
     Route: 065
  10. DOXORUBICIN HCL [Suspect]
     Route: 042
  11. IFOSFAMIDE [Suspect]
     Route: 042
  12. METOCLOPRAMIDE [Concomitant]
     Indication: PROPHYLAXIS OF NAUSEA AND VOMITING
     Route: 042
  13. NEUPOGEN [Concomitant]
     Route: 065
  14. ETOPOSIDE [Concomitant]
     Route: 065
  15. DOXORUBICIN HCL [Suspect]
     Indication: SARCOMA
     Route: 042
  16. ONDANSETRON [Concomitant]
     Indication: PROPHYLAXIS OF NAUSEA AND VOMITING
     Route: 065
  17. NEUPOGEN [Concomitant]
     Route: 065
  18. IFOSFAMIDE [Suspect]
     Indication: SARCOMA
     Dosage: CYCLE 2 OF AI50 REGIMEN, CONTINUOUS OVER 48 HOURS (DAYS 1 AND 2)
     Route: 042
  19. IFOSFAMIDE [Suspect]
     Route: 042
  20. NEUPOGEN [Concomitant]
     Route: 065
  21. IFOSFAMIDE [Suspect]
     Route: 042
  22. NEUPOGEN [Concomitant]
     Route: 065
  23. DOXORUBICIN HCL [Suspect]
     Dosage: CYCLE 2, OF AI50 REGIMEN, ON DAY 1
     Route: 042
  24. ETOPOSIDE [Concomitant]
     Route: 065
  25. DOXORUBICIN HCL [Suspect]
     Route: 042
  26. IFOSFAMIDE [Suspect]
     Route: 042
  27. IFOSFAMIDE [Suspect]
     Route: 042
  28. IFOSFAMIDE [Suspect]
     Route: 042
  29. IFOSFAMIDE [Suspect]
     Route: 042
  30. NEUPOGEN [Concomitant]
     Route: 065

REACTIONS (4)
  - MATERNAL EXPOSURE DURING PREGNANCY [None]
  - PREMATURE DELIVERY [None]
  - ALOPECIA [None]
  - NEUTROPENIA [None]
